FAERS Safety Report 22608262 (Version 1)
Quarter: 2023Q2

REPORT INFORMATION
  Report Type: Spontaneous
  Country: CA (occurrence: CA)
  Receive Date: 20230616
  Receipt Date: 20230616
  Transmission Date: 20230722
  Serious: Yes (Other)
  Sender: FDA-Public Use
  Company Number: CA-AUROBINDO-AUR-APL-2023-041877

PATIENT
  Age: 18 Year
  Sex: Male

DRUGS (2)
  1. QUETIAPINE [Suspect]
     Active Substance: QUETIAPINE
     Indication: Misophonia
     Dosage: 600 MILLIGRAM, ONCE A DAY
     Route: 065
  2. FLUVOXAMINE [Suspect]
     Active Substance: FLUVOXAMINE
     Indication: Misophonia
     Dosage: 40 MILLIGRAM, ONCE A DAY
     Route: 065

REACTIONS (1)
  - Therapeutic response decreased [Unknown]
